FAERS Safety Report 4881592-5 (Version None)
Quarter: 2005Q4

REPORT INFORMATION
  Report Type: 
  Country: None (occurrence: None)
  Receive Date: 20051209
  Receipt Date: 20050818
  Transmission Date: 20060501
  Serious: Yes (Hospitalization)
  Sender: FDA-Public Use
  Company Number: USA-2005-0021058

PATIENT
  Age: 48 Year
  Sex: Female

DRUGS (5)
  1. OXYCODONE HCL [Suspect]
     Indication: PAIN
     Dosage: SEE TEXT
  2. OXYCONTIN [Suspect]
     Indication: PAIN
     Dosage: SEE TEXT
  3. ACETAMINOPHEN AND OXYCODONE HCL [Concomitant]
  4. FLOVENT [Concomitant]
  5. ALBUTEROL [Concomitant]

REACTIONS (6)
  - CHOKING SENSATION [None]
  - COUGH [None]
  - DRUG WITHDRAWAL SYNDROME [None]
  - EYE IRRITATION [None]
  - EYE PRURITUS [None]
  - SWELLING FACE [None]
